FAERS Safety Report 17318202 (Version 1)
Quarter: 2020Q1

REPORT INFORMATION
  Report Type: Spontaneous
  Country: CA (occurrence: CA)
  Receive Date: 20200124
  Receipt Date: 20200124
  Transmission Date: 20200409
  Serious: Yes (Other)
  Sender: FDA-Public Use
  Company Number: CA-TEVA-2020-CA-1172450

PATIENT

DRUGS (1)
  1. TEVA-SPIRONOLACTONE [Suspect]
     Active Substance: SPIRONOLACTONE
     Dosage: 25MG AND WORKING UP TO A DAILY DOSAGE OF 100 MG
     Route: 065
     Dates: start: 20191203, end: 20200113

REACTIONS (24)
  - Product substitution issue [Unknown]
  - Hypokalaemia [Unknown]
  - Confusional state [Unknown]
  - Paranoia [Unknown]
  - Thirst [Unknown]
  - Headache [Unknown]
  - Menstruation irregular [Unknown]
  - Amenorrhoea [Unknown]
  - Syncope [Unknown]
  - Vertigo [Unknown]
  - Abdominal pain upper [Unknown]
  - Depersonalisation/derealisation disorder [Unknown]
  - Myalgia [Unknown]
  - Migraine [Unknown]
  - Influenza like illness [Unknown]
  - Dizziness [Unknown]
  - Pyrexia [Unknown]
  - Fatigue [Unknown]
  - Nausea [Unknown]
  - Diarrhoea [Unknown]
  - Dry mouth [Unknown]
  - Palpitations [Unknown]
  - Musculoskeletal stiffness [Unknown]
  - Electrolyte imbalance [Unknown]
